FAERS Safety Report 23163248 (Version 1)
Quarter: 2023Q4

REPORT INFORMATION
  Report Type: Spontaneous
  Country: AU (occurrence: AU)
  Receive Date: 20231109
  Receipt Date: 20231109
  Transmission Date: 20240110
  Serious: Yes (Hospitalization, Other)
  Sender: FDA-Public Use
  Company Number: AU-ASTELLAS-2023US032653

PATIENT
  Age: 28 Year

DRUGS (2)
  1. GILTERITINIB [Suspect]
     Active Substance: GILTERITINIB
     Indication: Acute myeloid leukaemia
     Dosage: UNK UNK, UNKNOWN FREQ.
     Route: 065
     Dates: end: 202304
  2. VENETOCLAX [Suspect]
     Active Substance: VENETOCLAX
     Indication: Product used for unknown indication
     Dosage: UNK UNK, UNKNOWN FREQ.
     Route: 065

REACTIONS (9)
  - Wolff-Parkinson-White syndrome [Unknown]
  - Cytopenia [Unknown]
  - Salmonella bacteraemia [Unknown]
  - Alpha haemolytic streptococcal infection [Unknown]
  - Graft versus host disease [Unknown]
  - Liver function test increased [Unknown]
  - Acute myeloid leukaemia recurrent [Unknown]
  - Sinusitis [Unknown]
  - Product use issue [Unknown]

NARRATIVE: CASE EVENT DATE: 20220901
